FAERS Safety Report 20601223 (Version 1)
Quarter: 2022Q1

REPORT INFORMATION
  Report Type: Spontaneous
  Country: US (occurrence: US)
  Receive Date: 20220316
  Receipt Date: 20220316
  Transmission Date: 20220423
  Serious: Yes (Other)
  Sender: FDA-Public Use
  Company Number: US-PFIZER INC-202101293263

PATIENT
  Age: 39 Year
  Sex: Female

DRUGS (4)
  1. OXALIPLATIN [Suspect]
     Active Substance: OXALIPLATIN
     Indication: Colorectal cancer metastatic
     Dosage: 18TH LIFETIME OXALIPLATIN EXPOSURE
  2. BEVACIZUMAB [Concomitant]
     Active Substance: BEVACIZUMAB
     Indication: Colorectal cancer metastatic
  3. LEUCOVORIN [Concomitant]
     Active Substance: LEUCOVORIN
     Indication: Colorectal cancer metastatic
  4. FLUOROURACIL [Concomitant]
     Active Substance: FLUOROURACIL
     Indication: Colorectal cancer metastatic

REACTIONS (2)
  - Type II hypersensitivity [Unknown]
  - Drug hypersensitivity [Unknown]
